FAERS Safety Report 5050870-1 (Version None)
Quarter: 2006Q3

REPORT INFORMATION
  Report Type: 
  Country: None (occurrence: None)
  Receive Date: 20060710
  Receipt Date: 20060627
  Transmission Date: 20061208
  Serious: Yes (Death)
  Sender: FDA-Public Use
  Company Number: 2006074497

PATIENT
  Age: 37 Year
  Sex: Male

DRUGS (8)
  1. DOXORUBICIN HCL [Suspect]
     Indication: MULTIPLE MYELOMA
     Dosage: 50 MG/25 ML, INTRAVENOUS
     Route: 042
     Dates: start: 20060215, end: 20060418
  2. VINCRISTINE SULFATE [Suspect]
     Indication: MULTIPLE MYELOMA
     Dosage: INTRAVENOUS
     Route: 042
     Dates: start: 20060215, end: 20060218
  3. BORTEZOMIB (BORTEZOMIB) [Suspect]
     Indication: MULTIPLE MYELOMA
     Dosage: INTRAVENOUS
     Route: 042
     Dates: start: 20060418, end: 20060421
  4. DEXAMETHASONE SODIUM PHOSPHATE [Concomitant]
  5. CIFLOX (CIPROFLOXACIN) [Concomitant]
  6. CEFTAZIDIME PENTAHYDRATE [Concomitant]
  7. AUGMENTIN '125' [Concomitant]
  8. ARANESP [Concomitant]

REACTIONS (4)
  - ACUTE TONSILLITIS [None]
  - AGRANULOCYTOSIS [None]
  - DRUG INEFFECTIVE [None]
  - SUDDEN DEATH [None]
